FAERS Safety Report 23687377 (Version 1)
Quarter: 2024Q1

REPORT INFORMATION
  Report Type: Report from Study
  Country: GB (occurrence: GB)
  Receive Date: 20240329
  Receipt Date: 20240329
  Transmission Date: 20240409
  Serious: Yes (Death, Other)
  Sender: FDA-Public Use
  Company Number: GB-002147023-NVSC2019GB063858

PATIENT
  Sex: Female

DRUGS (2)
  1. HYRIMOZ [Suspect]
     Active Substance: ADALIMUMAB-ADAZ
     Indication: Rheumatoid arthritis
     Dosage: 1 DF, Q2W
     Route: 058
     Dates: start: 20190919
  2. HYRIMOZ [Suspect]
     Active Substance: ADALIMUMAB-ADAZ
     Dosage: 40 MG, Q2W
     Route: 058

REACTIONS (5)
  - Death [Fatal]
  - Musculoskeletal pain [Unknown]
  - Arthritis [Unknown]
  - Mobility decreased [Unknown]
  - Arthralgia [Unknown]
